FAERS Safety Report 9655000 (Version 1)
Quarter: 2013Q4

REPORT INFORMATION
  Report Type: Spontaneous
  Country: US (occurrence: US)
  Receive Date: 20131029
  Receipt Date: 20131029
  Transmission Date: 20140711
  Serious: No
  Sender: FDA-Public Use
  Company Number: US-PURDUE-USA-2012-0092320

PATIENT
  Sex: Female

DRUGS (9)
  1. OXYCONTIN (NDA 22-272) [Suspect]
     Indication: PAIN
     Dosage: 10 MG, BID
     Route: 048
  2. PERCOCET                           /00867901/ [Concomitant]
     Indication: ARTHRALGIA
     Dosage: UNK
     Route: 048
  3. HYDROCODONE FILM-COATED TAB (59,175) [Concomitant]
     Indication: BREAKTHROUGH PAIN
     Dosage: 5 MG, DAILY
     Route: 048
  4. EFFEXOR [Concomitant]
     Indication: DEPRESSION
     Dosage: 75 MG, DAILY
     Route: 048
  5. EFFEXOR [Concomitant]
     Indication: ANXIETY
  6. SEROQUEL [Concomitant]
     Indication: INSOMNIA
     Dosage: 25 MG, HS
     Route: 048
  7. PRAVASTATIN [Concomitant]
     Indication: BLOOD CHOLESTEROL INCREASED
     Dosage: 20 MG, DAILY
     Route: 048
     Dates: end: 20120827
  8. GEMFIBROZIL [Concomitant]
     Indication: BLOOD TRIGLYCERIDES
     Dosage: 600 MG, DAILY
     Route: 048
  9. HORMONES [Concomitant]
     Indication: HORMONE REPLACEMENT THERAPY

REACTIONS (4)
  - Arthralgia [Not Recovered/Not Resolved]
  - Activities of daily living impaired [Not Recovered/Not Resolved]
  - Neck pain [Unknown]
  - Hot flush [Unknown]
